FAERS Safety Report 6397487-4 (Version None)
Quarter: 2009Q4

REPORT INFORMATION
  Report Type: 
  Country: None (occurrence: None)
  Receive Date: 20091012
  Receipt Date: 20091001
  Transmission Date: 20100525
  Serious: Yes (Hospitalization)
  Sender: FDA-Public Use
  Company Number: FR-PFIZER INC-2009276639

PATIENT
  Age: 70 Year

DRUGS (6)
  1. TAHOR [Suspect]
     Dosage: 10 MG, 1X/DAY
     Route: 048
  2. ALDALIX [Suspect]
     Dosage: 1 DF, 1X/DAY
     Route: 048
  3. PREVISCAN [Suspect]
     Dosage: 1.25 DF, 1X/DAY
     Route: 048
     Dates: end: 20090322
  4. DETENSIEL [Suspect]
     Dosage: 5 MG, 1X/DAY
     Route: 048
  5. NEXIUM [Concomitant]
     Indication: GASTROOESOPHAGEAL REFLUX DISEASE
     Dosage: 20 MG, 1X/DAY
     Route: 048
  6. LASILIX [Concomitant]
     Dosage: 60 MG, 1X/DAY
     Route: 048

REACTIONS (2)
  - ANAEMIA [None]
  - OVERDOSE [None]
